FAERS Safety Report 23591327 (Version 1)
Quarter: 2024Q1

REPORT INFORMATION
  Report Type: Spontaneous
  Country: US (occurrence: US)
  Receive Date: 20240304
  Receipt Date: 20240304
  Transmission Date: 20240410
  Serious: Yes (Other)
  Sender: FDA-Public Use
  Company Number: US-MLMSERVICE-20240221-4841765-1

PATIENT

DRUGS (1)
  1. DOXYCYCLINE [Suspect]
     Active Substance: DOXYCYCLINE
     Indication: Parotitis
     Dosage: 1 DOSAGE FORM
     Route: 065

REACTIONS (4)
  - Hallucination, visual [Unknown]
  - Diarrhoea [Unknown]
  - Headache [Unknown]
  - Intentional product use issue [Recovered/Resolved]
